FAERS Safety Report 21601522 (Version 1)
Quarter: 2022Q4

REPORT INFORMATION
  Report Type: Spontaneous
  Country: US (occurrence: None)
  Receive Date: 20221115
  Receipt Date: 20221115
  Transmission Date: 20230112
  Serious: Yes (Death)
  Sender: FDA-Public Use
  Company Number: None

PATIENT
  Age: 62 Year
  Sex: Female

DRUGS (1)
  1. ZIEXTENZO [Suspect]
     Active Substance: PEGFILGRASTIM-BMEZ
     Route: 058

REACTIONS (4)
  - Leukaemia [None]
  - Infection [None]
  - Haemorrhage [None]
  - Renal failure [None]

NARRATIVE: CASE EVENT DATE: 20221114
